FAERS Safety Report 10381352 (Version 1)
Quarter: 2014Q3

REPORT INFORMATION
  Report Type: Spontaneous
  Country: US (occurrence: None)
  Receive Date: 20140812
  Receipt Date: 20140812
  Transmission Date: 20150326
  Serious: Yes (Hospitalization)
  Sender: FDA-Public Use
  Company Number: None

PATIENT
  Sex: Male
  Weight: 108.6 kg

DRUGS (16)
  1. CIPROFLOXACIN. [Concomitant]
     Active Substance: CIPROFLOXACIN
  2. VITAMIN C [Concomitant]
     Active Substance: ASCORBIC ACID
  3. ALPHA LIPSIS SOID.CINNAMON [Concomitant]
  4. MILK THISTLE [Concomitant]
     Active Substance: MILK THISTLE
  5. PHENERGAN [Concomitant]
     Active Substance: PROMETHAZINE HYDROCHLORIDE
  6. RIBAVIRIN 200 MG [Suspect]
     Active Substance: RIBAVIRIN
     Indication: HEPATITIS C
     Route: 048
     Dates: start: 20140228
  7. PRILOSEC [Concomitant]
     Active Substance: OMEPRAZOLE MAGNESIUM
  8. LASIX [Concomitant]
     Active Substance: FUROSEMIDE
  9. COREG [Concomitant]
     Active Substance: CARVEDILOL
  10. MULTIVITAMINS [Concomitant]
     Active Substance: VITAMINS
  11. GABAPENTIN. [Concomitant]
     Active Substance: GABAPENTIN
  12. LACTINEX GRANULES [Concomitant]
  13. SOFOSBUVIR 400 MG [Suspect]
     Active Substance: SOFOSBUVIR
     Indication: HEPATITIS C
     Route: 048
     Dates: start: 20140228
  14. FLONASE [Concomitant]
     Active Substance: FLUTICASONE PROPIONATE
  15. PROZAC [Concomitant]
     Active Substance: FLUOXETINE HYDROCHLORIDE
  16. SALMON OIL [Concomitant]
     Active Substance: FISH OIL

REACTIONS (5)
  - Hepatic encephalopathy [None]
  - Pulmonary granuloma [None]
  - Calcinosis [None]
  - Chronic obstructive pulmonary disease [None]
  - Emphysema [None]

NARRATIVE: CASE EVENT DATE: 20140419
